FAERS Safety Report 6609603-7 (Version None)
Quarter: 2010Q1

REPORT INFORMATION
  Report Type: 
  Country: None (occurrence: None)
  Receive Date: 20100302
  Receipt Date: 20100219
  Transmission Date: 20100710
  Serious: Yes (Other)
  Sender: FDA-Public Use
  Company Number: AU-JNJFOC-20100209229

PATIENT
  Age: 43 Year
  Sex: Female

DRUGS (5)
  1. REMICADE [Suspect]
     Indication: CROHN'S DISEASE
     Route: 042
  2. PREDNISOLONE [Concomitant]
  3. CLINDAMYCIN [Concomitant]
  4. TRAMADOL HCL [Concomitant]
  5. PANADOL [Concomitant]

REACTIONS (6)
  - ALOPECIA [None]
  - CONJUNCTIVITIS [None]
  - DERMAL SINUS [None]
  - RASH [None]
  - TOOTH LOSS [None]
  - WEIGHT DECREASED [None]
